FAERS Safety Report 7927259-8 (Version None)
Quarter: 2011Q4

REPORT INFORMATION
  Report Type: 
  Country: None (occurrence: None)
  Receive Date: 20111117
  Receipt Date: 20111117
  Transmission Date: 20120403
  Serious: No
  Sender: FDA-Public Use
  Company Number: None

PATIENT
  Age: 19 Year
  Sex: Male
  Weight: 90.5 kg

DRUGS (2)
  1. ACETAMINOPHEN [Suspect]
     Indication: COUGH
     Dosage: 325 ONCE PO
     Route: 048
     Dates: start: 20111113, end: 20111113
  2. ACETAMINOPHEN [Suspect]
     Indication: NASOPHARYNGITIS
     Dosage: 325 ONCE PO
     Route: 048
     Dates: start: 20111113, end: 20111113

REACTIONS (3)
  - CONFUSIONAL STATE [None]
  - TOXICITY TO VARIOUS AGENTS [None]
  - HALLUCINATION [None]
